FAERS Safety Report 5752993-8 (Version None)
Quarter: 2008Q2

REPORT INFORMATION
  Report Type: 
  Country: None (occurrence: None)
  Receive Date: 20080527
  Receipt Date: 20080508
  Transmission Date: 20081010
  Serious: Yes (Death, Hospitalization)
  Sender: FDA-Public Use
  Company Number: 2008AL004052

PATIENT
  Age: 72 Year
  Sex: Female

DRUGS (1)
  1. DIGOXIN          (AMIDE) [Suspect]
     Indication: ARRHYTHMIA
     Dosage: QOD
     Dates: start: 20071201

REACTIONS (3)
  - DYSPNOEA [None]
  - RENAL FAILURE [None]
  - THERAPEUTIC AGENT TOXICITY [None]
